FAERS Safety Report 6108176-5 (Version None)
Quarter: 2009Q1

REPORT INFORMATION
  Report Type: 
  Country: None (occurrence: None)
  Receive Date: 20090309
  Receipt Date: 20090224
  Transmission Date: 20090719
  Serious: Yes (Death, Hospitalization, Other)
  Sender: FDA-Public Use
  Company Number: US-ROCHE-612611

PATIENT
  Sex: Female
  Weight: 72.6 kg

DRUGS (2)
  1. CAPECITABINE [Suspect]
     Dosage: 1500 MG AM, 1500 MG PM.
     Route: 048
     Dates: start: 20081030, end: 20090222
  2. ZOMETA [Concomitant]

REACTIONS (3)
  - DEATH [None]
  - DISEASE PROGRESSION [None]
  - PLATELET COUNT DECREASED [None]
